FAERS Safety Report 4885912-7 (Version None)
Quarter: 2006Q1

REPORT INFORMATION
  Report Type: 
  Country: None (occurrence: None)
  Receive Date: 20060120
  Receipt Date: 20051226
  Transmission Date: 20060701
  Serious: Yes (Other)
  Sender: FDA-Public Use
  Company Number: JP-ROCHE-430177

PATIENT
  Age: 8 Year
  Sex: Female
  Weight: 26 kg

DRUGS (4)
  1. TAMIFLU [Suspect]
     Indication: INFLUENZA
     Route: 048
     Dates: start: 20051218, end: 20051218
  2. ASVERIN [Concomitant]
     Route: 048
     Dates: start: 20051214, end: 20051218
  3. MUCODYNE [Concomitant]
     Route: 048
     Dates: start: 20051214, end: 20051218
  4. PERIACTIN [Concomitant]
     Route: 048
     Dates: start: 20051214, end: 20051218

REACTIONS (3)
  - DEPRESSED LEVEL OF CONSCIOUSNESS [None]
  - DYSLALIA [None]
  - DYSPHAGIA [None]
